FAERS Safety Report 10880187 (Version 1)
Quarter: 2015Q1

REPORT INFORMATION
  Report Type: Report from Study
  Country: US (occurrence: US)
  Receive Date: 20150302
  Receipt Date: 20150302
  Transmission Date: 20150721
  Serious: Yes (Life-Threatening, Hospitalization)
  Sender: FDA-Public Use
  Company Number: US-ACTELION-A-NJ2013-79959

PATIENT
  Age: 63 Year
  Sex: Female

DRUGS (3)
  1. ADCIRCA [Concomitant]
     Active Substance: TADALAFIL
  2. TRACLEER [Suspect]
     Active Substance: BOSENTAN\BOSENTAN MONOHYDRATE
     Indication: PULMONARY ARTERIAL HYPERTENSION
     Dosage: UNK
     Route: 048
     Dates: start: 20041018
  3. COUMADIN [Concomitant]
     Active Substance: WARFARIN SODIUM

REACTIONS (10)
  - Respiratory tract congestion [Unknown]
  - Blood iron decreased [Unknown]
  - Feeding disorder [Recovering/Resolving]
  - Pyrexia [Unknown]
  - Diarrhoea [Recovering/Resolving]
  - Transfusion [Recovering/Resolving]
  - Oxygen saturation decreased [Unknown]
  - Drug dose omission [Unknown]
  - Anaemia [Recovering/Resolving]
  - Haemoglobin decreased [Unknown]
